FAERS Safety Report 5553740-5 (Version None)
Quarter: 2007Q4

REPORT INFORMATION
  Report Type: 
  Country: None (occurrence: None)
  Receive Date: 20071213
  Receipt Date: 20071120
  Transmission Date: 20080405
  Serious: Yes (Other)
  Sender: FDA-Public Use
  Company Number: TR-ELI_LILLY_AND_COMPANY-TR200712001418

PATIENT
  Sex: Male
  Weight: 75 kg

DRUGS (5)
  1. HUMULIN 70/30 [Suspect]
     Dosage: UNK, UNK
     Route: 058
     Dates: start: 20070101, end: 20070101
  2. INSULIN HUMAN BIOSYNTHETIC [Concomitant]
     Dosage: 12 U, EACH MORNING
     Route: 058
     Dates: start: 20070101
  3. INSULIN HUMAN BIOSYNTHETIC [Concomitant]
     Dosage: 10 U, EACH EVENING
     Route: 058
     Dates: start: 20070101
  4. NORVASC [Concomitant]
     Indication: HYPERTENSION
     Dosage: 1 D/F, DAILY (1/D)
     Route: 048
     Dates: start: 20070601
  5. ASPIRIN [Concomitant]
     Indication: ANTICOAGULANT THERAPY
     Dosage: 1 D/F, DAILY (1/D)
     Route: 048
     Dates: start: 19970101

REACTIONS (1)
  - CEREBROVASCULAR ACCIDENT [None]
